FAERS Safety Report 8196530-X (Version None)
Quarter: 2012Q1

REPORT INFORMATION
  Report Type: 
  Country: None (occurrence: None)
  Receive Date: 20120309
  Receipt Date: 20120228
  Transmission Date: 20120608
  Serious: Yes (Death)
  Sender: FDA-Public Use
  Company Number: US-JNJFOC-20120214464

PATIENT
  Sex: Male

DRUGS (4)
  1. REMICADE [Suspect]
     Indication: CROHN'S DISEASE
     Dosage: DRUG TAKEN FROM LATE 1990S UNTIL APROXIMATELY ^JUN OR AUG 2008^
     Route: 042
     Dates: end: 20080801
  2. HUMIRA [Suspect]
     Indication: CROHN'S DISEASE
     Dates: start: 20080801, end: 20100201
  3. IMURAN [Suspect]
     Indication: CROHN'S DISEASE
     Dates: start: 20080601
  4. ALL OTHER THERAPEUTIC PRODUCTS [Concomitant]
     Indication: CROHN'S DISEASE

REACTIONS (2)
  - HAEMATOLOGICAL MALIGNANCY [None]
  - ACUTE MYELOID LEUKAEMIA [None]
